FAERS Safety Report 8407559-8 (Version None)
Quarter: 2012Q2

REPORT INFORMATION
  Report Type: 
  Country: None (occurrence: None)
  Receive Date: 20120604
  Receipt Date: 20120525
  Transmission Date: 20120825
  Serious: Yes (Hospitalization)
  Sender: FDA-Public Use
  Company Number: JP-VERTEX PHARMACEUTICALS INC.-AE-2012-006220

PATIENT
  Age: 67 Year
  Sex: Female

DRUGS (14)
  1. TELAVIC (TELAPREVIR) [Suspect]
     Indication: HEPATITIS C
     Route: 048
     Dates: start: 20120308, end: 20120403
  2. REBETOL [Concomitant]
     Route: 048
     Dates: start: 20120328, end: 20120403
  3. PEGINTERFERON ALFA-2B [Concomitant]
     Indication: HEPATITIS C
     Route: 051
     Dates: start: 20120308, end: 20120501
  4. ALLOPURINOL [Concomitant]
     Route: 048
     Dates: start: 20120404
  5. TELAVIC (TELAPREVIR) [Suspect]
     Route: 048
     Dates: start: 20120425, end: 20120509
  6. REBETOL [Concomitant]
     Route: 048
     Dates: start: 20120411, end: 20120521
  7. VOLTAREN [Concomitant]
     Route: 048
     Dates: start: 20120308
  8. TELAVIC (TELAPREVIR) [Suspect]
     Route: 048
     Dates: start: 20120404, end: 20120424
  9. REBETOL [Concomitant]
     Route: 048
     Dates: start: 20120404, end: 20120410
  10. MAIBASTAN [Concomitant]
     Route: 048
  11. MAGMITT [Concomitant]
     Route: 048
     Dates: start: 20120315
  12. GASTROM [Concomitant]
     Route: 048
     Dates: start: 20120321
  13. REBETOL [Concomitant]
     Indication: HEPATITIS C
     Route: 048
     Dates: start: 20120308, end: 20120327
  14. PEGINTERFERON ALFA-2B [Concomitant]
     Route: 051
     Dates: start: 20120502

REACTIONS (4)
  - PYELONEPHRITIS [None]
  - ANAEMIA [None]
  - LOSS OF CONSCIOUSNESS [None]
  - BLOOD CREATININE INCREASED [None]
